FAERS Safety Report 10057435 (Version 2)
Quarter: 2014Q2

REPORT INFORMATION
  Report Type: Spontaneous
  Country: JP (occurrence: JP)
  Receive Date: 20140403
  Receipt Date: 20140414
  Transmission Date: 20141212
  Serious: Yes (Other)
  Sender: FDA-Public Use
  Company Number: PHHY2014JP040384

PATIENT
  Age: 35 Year
  Sex: Female

DRUGS (4)
  1. EVEROLIMUS [Suspect]
     Indication: BREAST CANCER
     Route: 048
  2. ERIBULIN [Concomitant]
     Dosage: UNK
  3. PACLITAXEL [Concomitant]
     Dosage: UNK
  4. AVASTIN [Concomitant]
     Dosage: UNK

REACTIONS (3)
  - Cough [Unknown]
  - Metastases to heart [Unknown]
  - Pericardial effusion [Unknown]
